FAERS Safety Report 12732366 (Version 2)
Quarter: 2016Q4

REPORT INFORMATION
  Report Type: Spontaneous
  Country: JP (occurrence: JP)
  Receive Date: 20160912
  Receipt Date: 20161123
  Transmission Date: 20170207
  Serious: Yes (Other)
  Sender: FDA-Public Use
  Company Number: PHJP2016JP018795

PATIENT
  Age: 22 Year
  Sex: Female
  Weight: 42.7 kg

DRUGS (12)
  1. AFINITOR [Suspect]
     Active Substance: EVEROLIMUS
     Dosage: 5 MG, QD
     Route: 048
     Dates: start: 20160315, end: 20160704
  2. EXCEGRAN [Concomitant]
     Active Substance: ZONISAMIDE
     Indication: EPILEPSY
     Dosage: 440 MG, QD
     Route: 048
  3. AFINITOR [Suspect]
     Active Substance: EVEROLIMUS
     Indication: KIDNEY ANGIOMYOLIPOMA
     Dosage: 10 MG, QD
     Route: 048
     Dates: start: 20160229, end: 20160314
  4. POLAPREZINC [Concomitant]
     Active Substance: POLAPREZINC
     Indication: ZINC DEFICIENCY
     Dosage: 75 MG, QD
     Route: 048
  5. CINAL [Concomitant]
     Active Substance: ASCORBIC ACID\CALCIUM PANTOTHENATE
     Indication: PIGMENTATION DISORDER
     Dosage: 1 G, BID
     Route: 048
  6. PANTOSIN [Concomitant]
     Active Substance: PANTETHINE
     Indication: CONSTIPATION
     Dosage: 300 MG, BID
     Route: 048
  7. URALYT [Concomitant]
     Active Substance: POTASSIUM CITRATE\TRISODIUM CITRATE DIHYDRATE
     Indication: PROPHYLAXIS
     Dosage: 0.5 G, BID
     Route: 048
  8. BIO-THREE [Concomitant]
     Active Substance: HERBALS
     Indication: DYSBACTERIOSIS
     Dosage: 2 DF, BID
     Route: 048
  9. E KEPPRA [Concomitant]
     Active Substance: LEVETIRACETAM
     Indication: EPILEPSY
     Dosage: 500 MG, BID
     Route: 048
  10. KAYTWO [Concomitant]
     Active Substance: MENATETRENONE
     Indication: OSTEOPOROSIS PROPHYLAXIS
     Dosage: 1 ML, QW
     Route: 048
  11. LAMICTAL [Concomitant]
     Active Substance: LAMOTRIGINE
     Indication: EPILEPSY
     Dosage: 100 MG IN THE MORNING AND 15 MG IN THE EVENING
     Route: 048
     Dates: start: 200903
  12. HOCHUEKKITO                        /07973001/ [Concomitant]
     Active Substance: HERBALS
     Indication: PRODUCT USED FOR UNKNOWN INDICATION
     Dosage: 2.5 G, BID
     Route: 048
     Dates: start: 20160219

REACTIONS (10)
  - Dyspnoea [Recovering/Resolving]
  - Interstitial lung disease [Recovering/Resolving]
  - Rhinorrhoea [Recovering/Resolving]
  - Platelet count decreased [Recovered/Resolved]
  - Decreased appetite [Recovered/Resolved]
  - Stomatitis [Recovered/Resolved]
  - Blood lactate dehydrogenase increased [Unknown]
  - Genital haemorrhage [Recovered/Resolved]
  - Cough [Recovering/Resolving]
  - Pyrexia [Recovered/Resolved]

NARRATIVE: CASE EVENT DATE: 20160311
